FAERS Safety Report 18286886 (Version 1)
Quarter: 2020Q3

REPORT INFORMATION
  Report Type: Other
  Country: CA (occurrence: CA)
  Receive Date: 20200921
  Receipt Date: 20200921
  Transmission Date: 20201103
  Serious: Yes (Other)
  Sender: FDA-Public Use
  Company Number: CA-APOTEX-2020AP018003

PATIENT
  Age: 32 Year
  Sex: Female
  Weight: 68 kg

DRUGS (1)
  1. ACETAMINOPHEN/PHENYLEPHRINE [Suspect]
     Active Substance: ACETAMINOPHEN\PHENYLEPHRINE
     Indication: PRODUCT USED FOR UNKNOWN INDICATION
     Dosage: 1 DOSAGE FORM, QID
     Route: 048

REACTIONS (4)
  - Angioedema [Unknown]
  - Purpura [Unknown]
  - Anaphylactic reaction [Unknown]
  - Pruritus [Unknown]
